FAERS Safety Report 16465517 (Version 1)
Quarter: 2019Q2

REPORT INFORMATION
  Report Type: Spontaneous
  Country: US (occurrence: US)
  Receive Date: 20190621
  Receipt Date: 20190621
  Transmission Date: 20190711
  Serious: No
  Sender: FDA-Public Use
  Company Number: US-EGALET US INC-US-2018EGA000578

PATIENT

DRUGS (2)
  1. SPRIX [Suspect]
     Active Substance: KETOROLAC TROMETHAMINE
     Indication: MIGRAINE
  2. SPRIX [Suspect]
     Active Substance: KETOROLAC TROMETHAMINE
     Indication: ANALGESIC THERAPY
     Dosage: 1 SPRAY IN EACH NOSTRIL EVERY 6-8 HOURS
     Route: 045
     Dates: start: 20180807, end: 20180809

REACTIONS (6)
  - Throat irritation [Unknown]
  - Pain [Unknown]
  - Influenza like illness [Unknown]
  - Hyperhidrosis [Unknown]
  - Lacrimation increased [Unknown]
  - Nasal discomfort [Unknown]

NARRATIVE: CASE EVENT DATE: 201808
